FAERS Safety Report 13723239 (Version 1)
Quarter: 2017Q3

REPORT INFORMATION
  Report Type: Spontaneous
  Country: US (occurrence: US)
  Receive Date: 20170706
  Receipt Date: 20170706
  Transmission Date: 20171127
  Serious: No
  Sender: FDA-Public Use
  Company Number: US-JNJFOC-20170526444

PATIENT
  Age: 39 Year
  Sex: Male
  Weight: 109.77 kg

DRUGS (9)
  1. OMEPRAZOLE. [Concomitant]
     Active Substance: OMEPRAZOLE
     Route: 048
  2. WELCHOL [Concomitant]
     Active Substance: COLESEVELAM HYDROCHLORIDE
     Route: 048
  3. FENOFIBRATE. [Concomitant]
     Active Substance: FENOFIBRATE
     Route: 048
  4. HYDROCORTISONE ACETATE. [Concomitant]
     Active Substance: HYDROCORTISONE ACETATE
     Route: 061
     Dates: start: 20131031
  5. HYDROCODONE [Concomitant]
     Active Substance: HYDROCODONE
     Route: 048
     Dates: start: 20161005
  6. REMICADE [Suspect]
     Active Substance: INFLIXIMAB
     Indication: CROHN^S DISEASE
     Route: 042
     Dates: start: 20120208, end: 20161108
  7. LISINOPRIL. [Concomitant]
     Active Substance: LISINOPRIL
     Route: 048
  8. PAXIL [Concomitant]
     Active Substance: PAROXETINE HYDROCHLORIDE
     Route: 048
  9. ACETAMINOPHEN. [Concomitant]
     Active Substance: ACETAMINOPHEN
     Route: 048
     Dates: start: 20160824, end: 20161108

REACTIONS (11)
  - Drug ineffective [Unknown]
  - Diverticulum [Unknown]
  - Anal incontinence [Unknown]
  - Diarrhoea [Unknown]
  - Abdominal pain [Unknown]
  - Hepatic steatosis [Unknown]
  - Haemorrhoids [Unknown]
  - Cholelithiasis [Unknown]
  - Renal cyst [Unknown]
  - Anal fissure [Unknown]
  - Constipation [Unknown]

NARRATIVE: CASE EVENT DATE: 20131031
